FAERS Safety Report 23525307 (Version 4)
Quarter: 2024Q3

REPORT INFORMATION
  Report Type: Spontaneous
  Country: CA (occurrence: CA)
  Receive Date: 20240215
  Receipt Date: 20240815
  Transmission Date: 20241017
  Serious: Yes (Other)
  Sender: CELLTRION
  Company Number: CA-CELLTRION INC.-2023CA025498

PATIENT

DRUGS (21)
  1. TRUXIMA [Suspect]
     Active Substance: RITUXIMAB-ABBS
     Indication: Rheumatoid arthritis
     Dosage: 1000 MG, DAY 1 AND 15
     Route: 042
     Dates: start: 20240118
  2. TRUXIMA [Suspect]
     Active Substance: RITUXIMAB-ABBS
     Dosage: 1000 MG, INFUSION #1
     Route: 042
     Dates: start: 20240118
  3. TRUXIMA [Suspect]
     Active Substance: RITUXIMAB-ABBS
     Dosage: 1000 MG INFUSION #3
     Route: 042
     Dates: start: 20240118
  4. TRUXIMA [Suspect]
     Active Substance: RITUXIMAB-ABBS
     Dosage: 1000 MG INFUSION #4
     Route: 042
     Dates: start: 20240118
  5. AMLODIPINE [Concomitant]
     Active Substance: AMLODIPINE BESYLATE
     Dosage: 1 TAB ONCE, DAILY
  6. APIXABAN [Concomitant]
     Active Substance: APIXABAN
     Dosage: 1 TAB TWICE DAILY
  7. FOLIC ACID [Concomitant]
     Active Substance: FOLIC ACID
     Dosage: 2 TAB ONCE DAILY
  8. ATORVASTATIN [Concomitant]
     Active Substance: ATORVASTATIN
     Indication: Blood cholesterol
     Dosage: ONCE TABLET ONCE DAILY
  9. DULOXETINE [Concomitant]
     Active Substance: DULOXETINE
     Dosage: 1 CAPSULE ONCE DAILY
  10. PLAQUENIL [Concomitant]
     Active Substance: HYDROXYCHLOROQUINE SULFATE
     Indication: Rheumatoid arthritis
     Dosage: 1 TAB ONCE DAILY
  11. RANITIDINE [Concomitant]
     Active Substance: RANITIDINE
     Indication: Gastrooesophageal reflux disease
     Dosage: 1 TAB TWICE DAILY
  12. METOPROLOL [Concomitant]
     Active Substance: METOPROLOL
     Indication: Blood pressure measurement
     Dosage: 1 TAB TWICE DAILY
  13. METOPROLOL [Concomitant]
     Active Substance: METOPROLOL
     Indication: Cardiac disorder
  14. OMEGA 369 [BORAGO OFFICINALIS OIL;FISH OIL;OLEA EUROPAEA OIL] [Concomitant]
     Dosage: ONCE CAP ONCE DAILY
  15. PREGABALIN [Concomitant]
     Active Substance: PREGABALIN
     Indication: Myalgia
     Dosage: 1 CAP TWOCE DAILY
  16. VITAMIN D NOS [Concomitant]
     Active Substance: CHOLECALCIFEROL\ERGOCALCIFEROL
     Dosage: 1 TAB ONCE DAILY
  17. CALCIUM [Concomitant]
     Active Substance: CALCIUM
     Dosage: 1 TAB ONCE DAILY
  18. ACETAMINOPHEN [Concomitant]
     Active Substance: ACETAMINOPHEN
     Indication: Premedication
     Dosage: 650 MG
  19. METHYLPREDNISOLONE [Concomitant]
     Active Substance: METHYLPREDNISOLONE
     Indication: Premedication
     Dosage: 100 MG
  20. DIPHENHYDRAMINE [Concomitant]
     Active Substance: DIPHENHYDRAMINE
     Indication: Premedication
     Dosage: 50 MG
  21. TYLENOL [Concomitant]
     Active Substance: ACETAMINOPHEN
     Dosage: 1000 MG

REACTIONS (8)
  - Oxygen saturation decreased [Unknown]
  - Hypertension [Recovered/Resolved]
  - Mobility decreased [Unknown]
  - Respiratory disorder [Unknown]
  - Dyspnoea [Unknown]
  - Tremor [Recovered/Resolved]
  - Walking aid user [Unknown]
  - Off label use [Recovered/Resolved]

NARRATIVE: CASE EVENT DATE: 20240118
